FAERS Safety Report 24977586 (Version 3)
Quarter: 2025Q4

REPORT INFORMATION
  Report Type: Report from Study
  Country: CA (occurrence: CA)
  Receive Date: 20250217
  Receipt Date: 20251204
  Transmission Date: 20260117
  Serious: Yes (Hospitalization, Other)
  Sender: SAMSUNG BIOEPIS
  Company Number: CA-SAMSUNG BIOEPIS-SB-2025-05625

PATIENT
  Age: 59 Year
  Sex: Female

DRUGS (4)
  1. ETANERCEPT [Suspect]
     Active Substance: ETANERCEPT
     Indication: Rheumatoid arthritis
     Dates: start: 20171124
  2. ETANERCEPT [Suspect]
     Active Substance: ETANERCEPT
     Dates: start: 20250113
  3. METHOTREXATE [Suspect]
     Active Substance: METHOTREXATE
     Indication: Product used for unknown indication
     Dosage: TOOK THE LAST HALF DOSE (12.5MG) ON 08-JAN-2025
     Dates: end: 20250108
  4. METHOTREXATE [Suspect]
     Active Substance: METHOTREXATE
     Dosage: BUMPING DOSAGE FROM 5 MG TO 10 MG;

REACTIONS (11)
  - Illness [Unknown]
  - Upper gastrointestinal haemorrhage [Unknown]
  - Haemorrhage [Unknown]
  - Platelet count decreased [Unknown]
  - International normalised ratio increased [Unknown]
  - Cardiac failure congestive [Not Recovered/Not Resolved]
  - COVID-19 [Unknown]
  - Drug intolerance [Unknown]
  - Pain [Not Recovered/Not Resolved]
  - Stress [Not Recovered/Not Resolved]
  - Arthralgia [Not Recovered/Not Resolved]

NARRATIVE: CASE EVENT DATE: 20250101
